FAERS Safety Report 6287736-5 (Version None)
Quarter: 2009Q3

REPORT INFORMATION
  Report Type: 
  Country: None (occurrence: None)
  Receive Date: 20090727
  Receipt Date: 20090727
  Transmission Date: 20100115
  Serious: No
  Sender: FDA-Public Use
  Company Number: None

PATIENT
  Sex: Female
  Weight: 61.2356 kg

DRUGS (2)
  1. HUMIRA [Suspect]
     Indication: CROHN'S DISEASE
     Dosage: 40 MG QOW SQ
     Dates: start: 20090301, end: 20090301
  2. HUMIRA [Suspect]
     Dosage: 160 MG DAY 1 SQ
     Dates: start: 20090717, end: 20090717

REACTIONS (4)
  - BRUXISM [None]
  - HAEMORRHAGE [None]
  - ORAL PAIN [None]
  - TOOTH LOSS [None]
